FAERS Safety Report 5966227-2 (Version None)
Quarter: 2008Q4

REPORT INFORMATION
  Report Type: 
  Country: None (occurrence: None)
  Receive Date: 20081125
  Receipt Date: 20081117
  Transmission Date: 20090506
  Serious: Yes (Other)
  Sender: FDA-Public Use
  Company Number: BR-JNJFOC-20081104418

PATIENT
  Sex: Female
  Weight: 56 kg

DRUGS (3)
  1. TOPAMAX [Suspect]
     Indication: WEIGHT LOSS DIET
     Route: 048
  2. XENICAL [Concomitant]
     Indication: WEIGHT LOSS DIET
     Route: 001
  3. BOM VIVA [Concomitant]
     Indication: BLOOD CALCIUM

REACTIONS (1)
  - DEPRESSION [None]
